FAERS Safety Report 10929012 (Version 4)
Quarter: 2015Q2

REPORT INFORMATION
  Report Type: Spontaneous
  Country: US (occurrence: US)
  Receive Date: 20150319
  Receipt Date: 20150524
  Transmission Date: 20150821
  Serious: No
  Sender: FDA-Public Use
  Company Number: US-JNJFOC-20150117447

PATIENT
  Sex: Male
  Weight: 122.47 kg

DRUGS (12)
  1. CONCERTA [Suspect]
     Active Substance: METHYLPHENIDATE HYDROCHLORIDE
     Indication: DEPRESSION
     Route: 048
     Dates: start: 2014
  2. CONCERTA [Suspect]
     Active Substance: METHYLPHENIDATE HYDROCHLORIDE
     Indication: PANIC ATTACK
     Dosage: (36 MG X 2)
     Route: 048
     Dates: start: 2014, end: 2014
  3. CONCERTA [Suspect]
     Active Substance: METHYLPHENIDATE HYDROCHLORIDE
     Indication: DEPRESSION
     Dosage: 54 MG IN THE MORNING AND 36 MG LATER IN THE DAY
     Route: 048
     Dates: start: 2014, end: 2014
  4. CONCERTA [Suspect]
     Active Substance: METHYLPHENIDATE HYDROCHLORIDE
     Indication: DEPRESSION
     Dosage: (36 MG X 2)
     Route: 048
     Dates: start: 2014, end: 2014
  5. CONCERTA [Suspect]
     Active Substance: METHYLPHENIDATE HYDROCHLORIDE
     Indication: ATTENTION DEFICIT/HYPERACTIVITY DISORDER
     Route: 048
     Dates: start: 2014, end: 2014
  6. CONCERTA [Suspect]
     Active Substance: METHYLPHENIDATE HYDROCHLORIDE
     Indication: PANIC ATTACK
     Route: 048
     Dates: start: 2014, end: 2014
  7. CONCERTA [Suspect]
     Active Substance: METHYLPHENIDATE HYDROCHLORIDE
     Indication: PANIC ATTACK
     Route: 048
     Dates: start: 2014
  8. CONCERTA [Suspect]
     Active Substance: METHYLPHENIDATE HYDROCHLORIDE
     Indication: ATTENTION DEFICIT/HYPERACTIVITY DISORDER
     Route: 048
     Dates: start: 2014
  9. CONCERTA [Suspect]
     Active Substance: METHYLPHENIDATE HYDROCHLORIDE
     Indication: PANIC ATTACK
     Dosage: 54 MG IN THE MORNING AND 36 MG LATER IN THE DAY
     Route: 048
     Dates: start: 2014, end: 2014
  10. CONCERTA [Suspect]
     Active Substance: METHYLPHENIDATE HYDROCHLORIDE
     Indication: DEPRESSION
     Route: 048
     Dates: start: 2014, end: 2014
  11. CONCERTA [Suspect]
     Active Substance: METHYLPHENIDATE HYDROCHLORIDE
     Indication: ATTENTION DEFICIT/HYPERACTIVITY DISORDER
     Dosage: 54 MG IN THE MORNING AND 36 MG LATER IN THE DAY
     Route: 048
     Dates: start: 2014, end: 2014
  12. CONCERTA [Suspect]
     Active Substance: METHYLPHENIDATE HYDROCHLORIDE
     Indication: ATTENTION DEFICIT/HYPERACTIVITY DISORDER
     Dosage: (36 MG X 2)
     Route: 048
     Dates: start: 2014, end: 2014

REACTIONS (10)
  - Therapeutic response unexpected [Unknown]
  - Underdose [Unknown]
  - Mental status changes [Not Recovered/Not Resolved]
  - Drug dose omission [Unknown]
  - Drug ineffective [Unknown]
  - Product use issue [Unknown]
  - Sleep disorder [Unknown]
  - Medication error [Unknown]
  - Inappropriate schedule of drug administration [Unknown]
  - Drug diversion [Unknown]

NARRATIVE: CASE EVENT DATE: 2014
